FAERS Safety Report 11952405 (Version 1)
Quarter: 2016Q1

REPORT INFORMATION
  Report Type: Spontaneous
  Country: US (occurrence: US)
  Receive Date: 20160126
  Receipt Date: 20160126
  Transmission Date: 20160526
  Serious: Yes (Other)
  Sender: FDA-Public Use
  Company Number: US-BAYER-2016-010849

PATIENT
  Sex: Male
  Weight: 102.4 kg

DRUGS (1)
  1. AFRIN ORIGINAL [Suspect]
     Active Substance: OXYMETAZOLINE HYDROCHLORIDE
     Indication: NASAL CONGESTION
     Dosage: 1 DF, HS
     Route: 045

REACTIONS (2)
  - Lung neoplasm malignant [None]
  - Product use issue [None]

NARRATIVE: CASE EVENT DATE: 2013
